FAERS Safety Report 21633691 (Version 2)
Quarter: 2022Q4

REPORT INFORMATION
  Report Type: Spontaneous
  Country: US (occurrence: US)
  Receive Date: 20221123
  Receipt Date: 20221202
  Transmission Date: 20230112
  Serious: Yes (Other)
  Sender: FDA-Public Use
  Company Number: US-PFIZER INC-PV202200109008

PATIENT
  Age: 43 Year
  Sex: Female

DRUGS (3)
  1. SOLU-MEDROL [Suspect]
     Active Substance: METHYLPREDNISOLONE SODIUM SUCCINATE
     Indication: Multiple sclerosis
     Dosage: UNK
  2. GILENYA [Concomitant]
     Active Substance: FINGOLIMOD HYDROCHLORIDE
     Dosage: UNK
  3. COPAXONE [Concomitant]
     Active Substance: GLATIRAMER ACETATE
     Dosage: UNK

REACTIONS (1)
  - Secondary adrenocortical insufficiency [Not Recovered/Not Resolved]
